FAERS Safety Report 19286984 (Version 3)
Quarter: 2021Q2

REPORT INFORMATION
  Report Type: Spontaneous
  Country: JP (occurrence: JP)
  Receive Date: 20210521
  Receipt Date: 20210616
  Transmission Date: 20210717
  Serious: Yes (Death, Hospitalization, Other)
  Sender: FDA-Public Use
  Company Number: JP-ASTRAZENECA-2021A320857

PATIENT
  Age: 870 Month
  Sex: Female
  Weight: 132 kg

DRUGS (17)
  1. LAC?B [Concomitant]
     Active Substance: BIFIDOBACTERIUM SPP.
     Dosage: DOSE UNKNOWN
     Route: 050
     Dates: start: 20210212, end: 20210414
  2. INSULIN [Concomitant]
     Active Substance: INSULIN NOS
     Dosage: DOSE UNKNOWN
     Route: 058
     Dates: end: 20210414
  3. ELNEOPA NO.2 [Concomitant]
     Active Substance: AMINO ACIDS\DEXTROSE\ELECTROLYTES NOS\MINERALS\VITAMINS
     Dosage: DOSE UNKNOWN
     Route: 041
     Dates: end: 20210414
  4. ASPIRIN. [Concomitant]
     Active Substance: ASPIRIN
     Dosage: DOSE UNKNOWN
     Route: 050
     Dates: start: 20210212, end: 20210414
  5. LUNESTA [Suspect]
     Active Substance: ESZOPICLONE
     Indication: SLEEP DISORDER
     Route: 050
     Dates: start: 20210212, end: 20210423
  6. OMEPRAL [Suspect]
     Active Substance: OMEPRAZOLE
     Dosage: DOSE UNKNOWN
     Route: 048
  7. FESIN [GUAIFENESIN] [Suspect]
     Active Substance: GUAIFENESIN
     Indication: ANAEMIA
     Route: 041
     Dates: start: 20210330, end: 20210427
  8. MODACIN [Suspect]
     Active Substance: CEFTAZIDIME
     Dosage: DOSE UNKNOWN
     Route: 041
     Dates: end: 20210414
  9. ELENTAL [Concomitant]
     Active Substance: AMINO ACIDS\CARBOHYDRATES\MINERALS\SOYBEAN OIL\VITAMINS
     Dosage: 100.0ML UNKNOWN
     Route: 065
     Dates: start: 20210216, end: 20210301
  10. E KEPPRA [Suspect]
     Active Substance: LEVETIRACETAM
     Indication: CEREBRAL INFARCTION
     Route: 050
     Dates: start: 20210324, end: 20210416
  11. CLINDAMYCIN. [Suspect]
     Active Substance: CLINDAMYCIN
     Dosage: DOSE UNKNOWN
     Route: 041
     Dates: end: 20210414
  12. NEXIUM [Suspect]
     Active Substance: ESOMEPRAZOLE MAGNESIUM
     Indication: COLITIS ULCERATIVE
     Route: 048
     Dates: start: 20210212, end: 20210407
  13. DALACIN [Suspect]
     Active Substance: CLINDAMYCIN
     Indication: PYELONEPHRITIS
     Route: 041
     Dates: start: 20210307, end: 20210309
  14. CEFTAZIDIME HYDRATE [Suspect]
     Active Substance: CEFTAZIDIME
     Dosage: DOSE UNKNOWN
     Route: 042
     Dates: end: 20210414
  15. SODIUM VALPROATE [Concomitant]
     Active Substance: VALPROATE SODIUM
     Dosage: DOSE UNKNOWN
     Route: 050
     Dates: start: 20210212, end: 20210414
  16. MIYA?BM [Concomitant]
     Active Substance: CLOSTRIDIUM BUTYRICUM SPORES STRAIN M-55
     Dosage: DOSE UNKNOWN
     Route: 050
     Dates: start: 20210212, end: 20210414
  17. ELENTAL [Concomitant]
     Active Substance: AMINO ACIDS\CARBOHYDRATES\MINERALS\SOYBEAN OIL\VITAMINS
     Dosage: 200.0ML UNKNOWN
     Route: 065
     Dates: start: 20210302, end: 20210416

REACTIONS (8)
  - Pyelonephritis [Recovering/Resolving]
  - Drug eruption [Recovering/Resolving]
  - Decreased immune responsiveness [Unknown]
  - Incorrect route of product administration [Unknown]
  - Circulatory collapse [Fatal]
  - C-reactive protein increased [Recovering/Resolving]
  - Pyrexia [Fatal]
  - Pneumonia aspiration [Recovering/Resolving]

NARRATIVE: CASE EVENT DATE: 202102
